FAERS Safety Report 9408981 (Version 1)
Quarter: 2013Q3

REPORT INFORMATION
  Report Type: Spontaneous
  Country: US (occurrence: None)
  Receive Date: 20130717
  Receipt Date: 20130717
  Transmission Date: 20140515
  Serious: Yes (Disabling)
  Sender: FDA-Public Use
  Company Number: None

PATIENT
  Age: 42 Year
  Sex: Male
  Weight: 83.92 kg

DRUGS (1)
  1. CIPROFLOXACIN 500MG [Suspect]
     Indication: PROSTATITIS
     Route: 048
     Dates: start: 20130425, end: 20130515

REACTIONS (5)
  - Tinnitus [None]
  - Eye pain [None]
  - Sinus disorder [None]
  - Parosmia [None]
  - Pain [None]
